FAERS Safety Report 21523746 (Version 1)
Quarter: 2022Q4

REPORT INFORMATION
  Report Type: Report from Study
  Country: US (occurrence: US)
  Receive Date: 20221029
  Receipt Date: 20221029
  Transmission Date: 20230112
  Serious: No
  Sender: FDA-Public Use
  Company Number: US-ABBVIE-22K-163-4436876-00

PATIENT
  Sex: Female

DRUGS (5)
  1. HUMIRA [Suspect]
     Active Substance: ADALIMUMAB
     Indication: Colitis ulcerative
     Dosage: CITRATE FREE
     Route: 058
     Dates: start: 20220428
  2. HUMIRA [Suspect]
     Active Substance: ADALIMUMAB
     Dosage: CITRATE FREE
     Route: 058
  3. PFIZER-BIONTECH COVID-19 VACCINE [Concomitant]
     Active Substance: TOZINAMERAN
     Indication: COVID-19 immunisation
     Dosage: FREQUENCY: ONE IN ONCE
     Route: 030
     Dates: start: 20210303, end: 20210303
  4. PFIZER-BIONTECH COVID-19 VACCINE [Concomitant]
     Active Substance: TOZINAMERAN
     Indication: COVID-19 immunisation
     Dosage: FREQUENCY: ONE IN ONCE
     Route: 030
     Dates: start: 20210403, end: 20210403
  5. PFIZER-BIONTECH COVID-19 VACCINE [Concomitant]
     Active Substance: TOZINAMERAN
     Indication: COVID-19 immunisation
     Dosage: FREQUENCY: ONE IN ONCE, BOOSTER DOSE
     Route: 030
     Dates: start: 20211010, end: 20211010

REACTIONS (11)
  - Chest pain [Recovering/Resolving]
  - Choking [Unknown]
  - Limb discomfort [Unknown]
  - Dyspnoea [Recovering/Resolving]
  - Skin discolouration [Unknown]
  - Hyperhidrosis [Recovering/Resolving]
  - Paraesthesia [Recovering/Resolving]
  - Pain in extremity [Unknown]
  - Heart rate increased [Recovering/Resolving]
  - Musculoskeletal discomfort [Unknown]
  - Nasopharyngitis [Unknown]

NARRATIVE: CASE EVENT DATE: 20220101
